FAERS Safety Report 12222119 (Version 3)
Quarter: 2016Q2

REPORT INFORMATION
  Report Type: Spontaneous
  Country: GR (occurrence: GR)
  Receive Date: 20160330
  Receipt Date: 20160413
  Transmission Date: 20160815
  Serious: Yes (Other)
  Sender: FDA-Public Use
  Company Number: GR-PFIZER INC-2016176807

PATIENT
  Age: 49 Year
  Sex: Male

DRUGS (4)
  1. ATAZANAVIR [Concomitant]
     Active Substance: ATAZANAVIR
     Indication: HIV INFECTION
     Dosage: UNK
  2. EMTRICITABINE/TENOFOVIR [Concomitant]
     Indication: HIV INFECTION
     Dosage: TENOFOVIR PLUS EMTRICITABINE (CO-FORMULATED)
  3. SILDENAFIL CITRATE. [Suspect]
     Active Substance: SILDENAFIL CITRATE
     Indication: APHRODISIAC THERAPY
     Dosage: 100 MG, UNK
  4. RITONAVIR. [Concomitant]
     Active Substance: RITONAVIR
     Indication: HIV INFECTION
     Dosage: UNK

REACTIONS (1)
  - Erythema multiforme [Recovered/Resolved]

NARRATIVE: CASE EVENT DATE: 20141021
